FAERS Safety Report 8951110 (Version 1)
Quarter: 2012Q4

REPORT INFORMATION
  Report Type: 
  Country: GB (occurrence: GB)
  Receive Date: 20121207
  Receipt Date: 20121207
  Transmission Date: 20130627
  Serious: Yes (Hospitalization)
  Sender: FDA-Public Use
  Company Number: GB-SANOFI-AVENTIS-2012SA087028

PATIENT
  Age: 58 Year
  Sex: Male

DRUGS (11)
  1. OXALIPLATIN [Suspect]
     Indication: STOMACH CANCER
     Route: 065
  2. CLOZARIL [Suspect]
     Indication: SCHIZOPHRENIA
     Route: 065
     Dates: start: 20010701, end: 20120718
  3. CLOZARIL [Suspect]
     Indication: SCHIZOPHRENIA
     Route: 065
     Dates: start: 20120721
  4. CLOZARIL [Suspect]
     Indication: SCHIZOPHRENIA
     Dosage: 150 mg, daily
     Route: 065
  5. EPIRUBICIN [Suspect]
     Indication: STOMACH CANCER
     Route: 065
  6. CAPECITABINE [Suspect]
     Indication: STOMACH CANCER
     Route: 065
  7. HALOPERIDOL [Concomitant]
     Indication: SCHIZOPHRENIA
     Dosage: 5 mg, daily
  8. PROCYCLIDINE [Concomitant]
     Indication: EXTRAPYRAMIDAL SYMPTOMS
     Dosage: 10 mg, UNK
  9. THIAMIN [Concomitant]
     Indication: VOMITING
     Dosage: 100 mg
  10. DALIVIT [Concomitant]
     Indication: VOMITING
     Dosage: 0.6 ml
  11. MOVICARD [Concomitant]
     Indication: STOMACH CANCER
     Dosage: UNK UKN, UNK

REACTIONS (10)
  - Adenocarcinoma gastric [Not Recovered/Not Resolved]
  - Obstruction gastric [Recovered/Resolved with Sequelae]
  - Weight decreased [Recovered/Resolved with Sequelae]
  - Diarrhoea [Recovered/Resolved with Sequelae]
  - Vomiting [Recovered/Resolved with Sequelae]
  - Malaise [Unknown]
  - Differential white blood cell count abnormal [Unknown]
  - White blood cell count increased [Unknown]
  - Neutrophil count decreased [Unknown]
  - Platelet count decreased [Unknown]
